FAERS Safety Report 20026638 (Version 1)
Quarter: 2021Q4

REPORT INFORMATION
  Report Type: Spontaneous
  Country: US (occurrence: US)
  Receive Date: 20211102
  Receipt Date: 20211102
  Transmission Date: 20220303
  Serious: No
  Sender: FDA-Public Use
  Company Number: US-SEAGEN-2021SGN04147

PATIENT
  Sex: Female

DRUGS (2)
  1. TUKYSA [Suspect]
     Active Substance: TUCATINIB
     Indication: Product used for unknown indication
     Dosage: UNK
     Dates: start: 20210714
  2. TRASTUZUMAB [Suspect]
     Active Substance: TRASTUZUMAB
     Indication: Product used for unknown indication

REACTIONS (3)
  - Oedema peripheral [Recovered/Resolved]
  - Cellulitis [Recovered/Resolved]
  - Steroid withdrawal syndrome [Recovered/Resolved]

NARRATIVE: CASE EVENT DATE: 20210801
